FAERS Safety Report 7805390-5 (Version None)
Quarter: 2011Q4

REPORT INFORMATION
  Report Type: 
  Country: None (occurrence: None)
  Receive Date: 20111010
  Receipt Date: 20111004
  Transmission Date: 20120403
  Serious: Yes (Other)
  Sender: FDA-Public Use
  Company Number: SE-PFIZER INC-2011238326

PATIENT
  Age: 83 Year
  Sex: Female

DRUGS (4)
  1. AMLODIPINE [Concomitant]
     Dosage: 5 MG, UNK
  2. XALATAN [Suspect]
     Dosage: UNK
  3. ATACAND [Concomitant]
     Dosage: 16 MG, UNK
  4. ZOPICLONE [Concomitant]
     Dosage: UNK

REACTIONS (3)
  - DIZZINESS [None]
  - MUSCULAR WEAKNESS [None]
  - DYSPNOEA [None]
